FAERS Safety Report 12527645 (Version 7)
Quarter: 2017Q3

REPORT INFORMATION
  Report Type: Spontaneous
  Country: US (occurrence: US)
  Receive Date: 20160705
  Receipt Date: 20170920
  Transmission Date: 20171127
  Serious: Yes (Hospitalization, Other)
  Sender: FDA-Public Use
  Company Number: US-PFIZER INC-2016320547

PATIENT
  Age: 68 Year
  Sex: Female
  Weight: 72.2 kg

DRUGS (49)
  1. XELJANZ XR [Suspect]
     Active Substance: TOFACITINIB CITRATE
     Dosage: 5 MG, UNK
  2. QVAR [Concomitant]
     Active Substance: BECLOMETHASONE DIPROPIONATE
     Dosage: 40 MCG/ACT INHALER AT 2 PUFFS INTO THE LUNGS 2 TIMES DAILY
     Route: 055
  3. LIPITOR [Concomitant]
     Active Substance: ATORVASTATIN CALCIUM
     Indication: BLOOD CHOLESTEROL INCREASED
     Dosage: 40 MG TABLET AT 1 TABLET, 1X/DAY (EVERY NIGHT AT BEDTIME)
     Route: 048
  4. TOPROL XL [Concomitant]
     Active Substance: METOPROLOL SUCCINATE
     Indication: BLOOD PRESSURE ABNORMAL
     Dosage: 25 MG TABLET AT 1 TABLET, 1X/DAY
     Route: 048
  5. PROTONIX [Concomitant]
     Active Substance: PANTOPRAZOLE SODIUM
     Indication: ULCER
     Dosage: 40 MG, 2X/DAY
     Route: 048
  6. COLACE [Concomitant]
     Active Substance: DOCUSATE SODIUM
     Dosage: 100 MG, DAILY
     Route: 048
  7. XELJANZ XR [Suspect]
     Active Substance: TOFACITINIB CITRATE
     Indication: RHEUMATOID ARTHRITIS
     Dosage: 11 MG, 1X/DAY
     Dates: start: 2015
  8. ALPRAZOLAM. [Concomitant]
     Active Substance: ALPRAZOLAM
     Indication: SLEEP DISORDER
     Dosage: 0.5 MG, AS NEEDED (EVERY NIGHT AT BEDTIME)
     Route: 048
  9. ALPRAZOLAM. [Concomitant]
     Active Substance: ALPRAZOLAM
     Indication: TINNITUS
  10. LUTEIN [Concomitant]
     Active Substance: LUTEIN
     Indication: VISUAL IMPAIRMENT
     Dosage: 20 MG, 2X/DAY
     Dates: start: 2016
  11. VITAMIN B12 [Concomitant]
     Active Substance: CYANOCOBALAMIN
     Dosage: 2500 UG, DAILY
     Route: 060
  12. TESSALON [Concomitant]
     Active Substance: BENZONATATE
     Indication: COUGH
     Dosage: 100 MG, AS NEEDED (3 TIMES DAILY)
     Route: 048
  13. VENTOLIN HFA [Concomitant]
     Active Substance: ALBUTEROL SULFATE
     Indication: DYSPNOEA
  14. VITAMIN D3 [Concomitant]
     Active Substance: CHOLECALCIFEROL
     Dosage: 1000 IU, 2X/DAY
     Dates: start: 2012
  15. ASPIRIN. [Concomitant]
     Active Substance: ASPIRIN
     Indication: CEREBROVASCULAR ACCIDENT
     Dosage: 81 MG, DAILY
     Route: 048
     Dates: start: 2012
  16. COLLAGEN [Concomitant]
     Active Substance: COLLAGEN
     Dosage: 500 MG, AS NEEDED (OCCASIONAL)/ THREE TIMES DAILY
     Route: 048
  17. FOLVITE [Concomitant]
     Active Substance: FOLIC ACID
     Dosage: 0.8 MG, DAILY
     Route: 048
  18. VENTOLIN HFA [Concomitant]
     Active Substance: ALBUTEROL SULFATE
     Indication: WHEEZING
     Dosage: 2 DF, AS NEEDED (INHALE 2 PUFFS INTO THE LUNGS EVERY 4 HOURS)
     Route: 055
  19. MIGRELIEF [Concomitant]
     Indication: MIGRAINE
     Dosage: 2 DF, UNK
     Dates: start: 2013
  20. HYDROCODONE/ACETAMINOPHEN [Concomitant]
     Active Substance: ACETAMINOPHEN\HYDROCODONE
     Indication: ARTHRALGIA
     Dosage: UNK [HYDROCODONE 5 MG]/[ ACETAMINOPHEN 325 MG]
     Dates: start: 2013
  21. FOSAMAX [Concomitant]
     Active Substance: ALENDRONATE SODIUM
     Dosage: 70 MG TABLET AT 1 TABLET, WEEKLY (EVERY 7 DAYS)
     Route: 048
  22. PRINIVIL [Concomitant]
     Active Substance: LISINOPRIL
     Dosage: 5 MG TABLET AT 1 TABLET , DAILY
     Route: 048
  23. GINGER. [Concomitant]
     Active Substance: GINGER
     Dosage: 2 DF, DAILY(TWO A DAY)
     Route: 048
     Dates: start: 2016
  24. KLOR-CON [Concomitant]
     Active Substance: POTASSIUM CHLORIDE
     Dosage: 20 MEQ, DAILY
     Route: 048
  25. PROVENTIL HFA [Concomitant]
     Active Substance: ALBUTEROL SULFATE
     Indication: DYSPNOEA
  26. COUMADIN [Concomitant]
     Active Substance: WARFARIN SODIUM
     Indication: COAGULOPATHY
     Dosage: 5 MG TABLET AT 1 TO 1 AND A HALF TABS DAILY
  27. VITAMIN C [Concomitant]
     Active Substance: ASCORBIC ACID
     Dosage: 500 MG, DAILY
     Route: 048
  28. GARAMYCIN [Concomitant]
     Active Substance: GENTAMICIN SULFATE
     Dosage: 1 GTT, 3X/DAY
     Route: 047
  29. XELJANZ XR [Suspect]
     Active Substance: TOFACITINIB CITRATE
     Dosage: 11 MG, DAILY
  30. FLOVENT HFA [Concomitant]
     Active Substance: FLUTICASONE PROPIONATE
     Dosage: 44 MCG/ACT INHALER AT 1 PUFF INTO THE LUNGS 2 TIMES DAILY
     Route: 055
  31. CRANBERRY/ VITAMIN C/VITAMIN E [Concomitant]
     Dosage: 2 DF, DAILY (CRANBERRY 4200 MG / ASCORBIC ACID 20 MG / VITAMIN E 3 UNIT)
     Route: 048
  32. PARAFON FORTE [Concomitant]
     Active Substance: CHLORZOXAZONE
     Indication: MUSCLE SPASMS
     Dosage: 500 MG TABLET AT 1 TABLET, AS NEEDED (NIGHTLY )
     Route: 048
  33. TUSSI-ORGANIDIN NR [Concomitant]
     Indication: COUGH
     Dosage: 10 ML, AS NEEDED (EVERY 6 HOURS)/(CODEINE PHOSPHATE- 10MG/5ML)/ (GUAIFENESIN-100MG/5ML)
     Route: 048
  34. CALCIUM + D3 [Concomitant]
     Active Substance: CALCIUM\CHOLECALCIFEROL
     Indication: SUPPLEMENTATION THERAPY
     Dosage: 600 MG, 2X/DAY
     Dates: start: 2012
  35. WARFARIN [Concomitant]
     Active Substance: WARFARIN
     Indication: CEREBROVASCULAR ACCIDENT
     Dosage: 5 MG, 1X/DAY (ONCE AT NIGHT)
  36. LEVOTHYROXINE. [Concomitant]
     Active Substance: LEVOTHYROXINE
     Indication: THYROID DISORDER
     Dosage: 50 MCG TABLET AT 1 TABLET , DAILY/0.05MG ONCE A DAY
     Route: 048
     Dates: start: 2012
  37. METHOTREXATE. [Concomitant]
     Active Substance: METHOTREXATE
     Dosage: 20 MG, WEEKLY (2.5 MG TABLET: TAKE 8 TABLETS/ONCE A WEEK ON WEDNESDAY)
     Route: 048
     Dates: start: 2013
  38. GLUCOSAMINE HCL/MSM [Concomitant]
     Dosage: 1500 MG, DAILY
     Route: 048
  39. VITAMIN D [Concomitant]
     Active Substance: CHOLECALCIFEROL
     Dosage: 2000 IU, DAILY
     Route: 048
  40. TUMS [Concomitant]
     Active Substance: CALCIUM CARBONATE
     Dosage: 500 MG, 2X/DAY
     Route: 048
  41. PROVENTIL HFA [Concomitant]
     Active Substance: ALBUTEROL SULFATE
     Indication: WHEEZING
     Dosage: 2 DF, AS NEEDED ( INHALE 2 PUFFS INTO THE LUNGS EVERY 4 HOURS)
     Route: 055
  42. HYDROCODONE/ACETAMINOPHEN [Concomitant]
     Active Substance: ACETAMINOPHEN\HYDROCODONE
     Indication: MYALGIA
  43. NORCO [Concomitant]
     Active Substance: ACETAMINOPHEN\HYDROCODONE BITARTRATE
     Indication: PAIN
     Dosage: 5-325 MG PER TABLET AT 0.5-1 TABLETS EVERY 4 HOURS AS NEEDED
     Route: 048
  44. ZESTRIL [Concomitant]
     Active Substance: LISINOPRIL
     Dosage: 5 MG TABLET AT 1 TABLET, DAILY
     Route: 048
  45. CYMBALTA [Concomitant]
     Active Substance: DULOXETINE HYDROCHLORIDE
     Indication: DEPRESSION
     Dosage: 30 MG CAPSULE AT 1 CAPSULE, DAILY
     Route: 048
     Dates: start: 2013
  46. COENZYME Q10 [Concomitant]
     Active Substance: UBIDECARENONE
     Dosage: 100 MG, 2X/DAY
     Route: 048
  47. BIOTIN [Concomitant]
     Active Substance: BIOTIN
     Indication: ALOPECIA
     Dosage: 5000 UG, (1-2 A DAY)
  48. PANTOPRAZOLE [Concomitant]
     Active Substance: PANTOPRAZOLE
     Indication: ULCER
     Dosage: 40 MG, 2X/DAY
  49. HYDROCODONE/ACETAMINOPHEN [Concomitant]
     Active Substance: ACETAMINOPHEN\HYDROCODONE
     Indication: FIBROMYALGIA

REACTIONS (15)
  - Condition aggravated [Not Recovered/Not Resolved]
  - Visual field defect [Unknown]
  - Loss of personal independence in daily activities [Unknown]
  - Somnolence [Unknown]
  - Cerebrovascular accident [Recovered/Resolved]
  - Memory impairment [Unknown]
  - Alopecia [Unknown]
  - Stress [Unknown]
  - Drug effect incomplete [Recovering/Resolving]
  - Peripheral swelling [Unknown]
  - Fatigue [Unknown]
  - Stress cardiomyopathy [Recovered/Resolved]
  - Pulmonary thrombosis [Not Recovered/Not Resolved]
  - Myocardial infarction [Recovered/Resolved]
  - Visual impairment [Not Recovered/Not Resolved]

NARRATIVE: CASE EVENT DATE: 201603
